FAERS Safety Report 14636236 (Version 7)
Quarter: 2019Q3

REPORT INFORMATION
  Report Type: Spontaneous
  Country: US (occurrence: US)
  Receive Date: 20180314
  Receipt Date: 20190812
  Transmission Date: 20191004
  Serious: Yes (Hospitalization)
  Sender: FDA-Public Use
  Company Number: US-ACTELION-A-NJ2018-169076

PATIENT
  Age: 50 Year
  Sex: Female
  Weight: 36.28 kg

DRUGS (3)
  1. WARFARIN [Concomitant]
     Active Substance: WARFARIN
  2. OPSUMIT [Suspect]
     Active Substance: MACITENTAN
     Indication: PULMONARY ARTERIAL HYPERTENSION
     Route: 048
  3. VELETRI [Suspect]
     Active Substance: EPOPROSTENOL
     Indication: PULMONARY ARTERIAL HYPERTENSION
     Dosage: 32 NG/KG, PER MIN
     Route: 042

REACTIONS (22)
  - Headache [Unknown]
  - Sensitive skin [Unknown]
  - Biopsy skin [Unknown]
  - Dyspnoea [Unknown]
  - Palpitations [Unknown]
  - Myalgia [Unknown]
  - Rash pruritic [Unknown]
  - Upper respiratory tract infection [Unknown]
  - Skin irritation [Unknown]
  - Complication associated with device [Unknown]
  - Device malfunction [Unknown]
  - Photosensitivity reaction [Unknown]
  - Chest discomfort [Unknown]
  - Dyspnoea exertional [Unknown]
  - Pain [Unknown]
  - Dyspepsia [Unknown]
  - Hypersensitivity [Recovering/Resolving]
  - Cough [Recovering/Resolving]
  - Diarrhoea [Unknown]
  - Fatigue [Unknown]
  - Chest pain [Unknown]
  - Flushing [Unknown]

NARRATIVE: CASE EVENT DATE: 20180304
